FAERS Safety Report 6210283-3 (Version None)
Quarter: 2009Q2

REPORT INFORMATION
  Report Type: 
  Country: None (occurrence: None)
  Receive Date: 20090601
  Receipt Date: 20090521
  Transmission Date: 20091009
  Serious: Yes (Other)
  Sender: FDA-Public Use
  Company Number: JP-PFIZER INC-2009217906

PATIENT
  Age: 55 Year

DRUGS (7)
  1. ZYVOX [Suspect]
     Indication: SPONDYLITIS
     Dosage: UNK
     Dates: start: 20071101
  2. ZYVOX [Suspect]
     Dosage: UNK
     Route: 048
     Dates: start: 20090327, end: 20090403
  3. PRORENAL [Concomitant]
     Route: 048
  4. BIOFERMIN [Concomitant]
     Route: 048
  5. TRYPTANOL [Concomitant]
     Route: 048
  6. VOLTAREN [Concomitant]
  7. PELEX [Concomitant]
     Route: 048

REACTIONS (1)
  - KERATITIS [None]
